FAERS Safety Report 16849336 (Version 1)
Quarter: 2019Q3

REPORT INFORMATION
  Report Type: Spontaneous
  Country: AT (occurrence: AT)
  Receive Date: 20190925
  Receipt Date: 20190925
  Transmission Date: 20191005
  Serious: Yes (Other)
  Sender: FDA-Public Use
  Company Number: AT-UCBSA-2019040736

PATIENT
  Age: 47 Year
  Sex: Female
  Weight: 54 kg

DRUGS (1)
  1. KEPPRA [Suspect]
     Active Substance: LEVETIRACETAM
     Indication: EPILEPSY
     Dates: start: 2000, end: 2018

REACTIONS (3)
  - Osteopenia [Not Recovered/Not Resolved]
  - Osteochondrosis [Recovered/Resolved]
  - Cervical spinal stenosis [Not Recovered/Not Resolved]
